FAERS Safety Report 9031017 (Version 1)
Quarter: 2013Q1

REPORT INFORMATION
  Report Type: Spontaneous
  Country: GB (occurrence: GB)
  Receive Date: 20130123
  Receipt Date: 20130123
  Transmission Date: 20140127
  Serious: Yes (Life-Threatening, Hospitalization)
  Sender: FDA-Public Use
  Company Number: PHHY2013GB005773

PATIENT
  Age: 34 Year
  Sex: Male
  Weight: 108 kg

DRUGS (3)
  1. WARFARIN [Suspect]
  2. STELARA [Suspect]
     Indication: PSORIASIS
     Dosage: 90 MG (DOSAGE FORM: LIQUID, HAD 2 DOSES- WEEK 0 AND 4)
     Route: 058
     Dates: start: 20110401
  3. OMEPRAZOLE [Concomitant]

REACTIONS (4)
  - Protein S deficiency [Unknown]
  - Intestinal infarction [Recovered/Resolved]
  - Abdominal pain [Recovered/Resolved]
  - Mesenteric vein thrombosis [Recovered/Resolved]
